FAERS Safety Report 4728176-7 (Version None)
Quarter: 2005Q3

REPORT INFORMATION
  Report Type: 
  Country: None (occurrence: None)
  Receive Date: 20050727
  Receipt Date: 20050727
  Transmission Date: 20060218
  Serious: Yes (Other)
  Sender: FDA-Public Use
  Company Number: None

PATIENT
  Age: 54 Year
  Sex: Male

DRUGS (1)
  1. EZETIMIBE 10MG [Suspect]
     Indication: HYPERLIPIDAEMIA
     Dosage: 10MG DAILY ORAL
     Route: 048

REACTIONS (3)
  - ABDOMINAL PAIN [None]
  - FLATULENCE [None]
  - HEADACHE [None]
